FAERS Safety Report 5548168-8 (Version None)
Quarter: 2007Q4

REPORT INFORMATION
  Report Type: 
  Country: None (occurrence: None)
  Receive Date: 20071206
  Receipt Date: 20071129
  Transmission Date: 20080405
  Serious: Yes (Death)
  Sender: FDA-Public Use
  Company Number: 2007SP024091

PATIENT
  Age: 41 Year
  Sex: Female

DRUGS (1)
  1. TEMODAL [Suspect]
     Indication: MALIGNANT GLIOMA
     Dosage: 75 MG/M2;QD;PO
     Route: 048
     Dates: start: 20071111, end: 20071113

REACTIONS (2)
  - INTRACRANIAL TUMOUR HAEMORRHAGE [None]
  - INTRAOCULAR PRESSURE INCREASED [None]
